FAERS Safety Report 7552011-5 (Version None)
Quarter: 2011Q2

REPORT INFORMATION
  Report Type: 
  Country: None (occurrence: None)
  Receive Date: 20110616
  Receipt Date: 20110609
  Transmission Date: 20111010
  Serious: Yes (Hospitalization)
  Sender: FDA-Public Use
  Company Number: US-AMGEN-KDC438050

PATIENT
  Age: 59 Year
  Sex: Male
  Weight: 83 kg

DRUGS (18)
  1. DOCETAXEL [Concomitant]
     Dosage: 40 MG/M2, Q2WK
     Route: 042
     Dates: start: 20100708
  2. LISINOPRIL [Concomitant]
     Dosage: 20 MG, QD
     Route: 048
  3. PROTONIX [Concomitant]
     Dosage: 40 MG, QD
     Route: 048
  4. CARAFATE [Concomitant]
     Dosage: 1 G, QID
     Route: 048
  5. ANDROGEL [Concomitant]
     Dosage: 1 G, QD
  6. XANAX [Concomitant]
     Dosage: .5 MG, PRN
     Route: 048
  7. PANITUMUMAB [Suspect]
     Indication: OESOPHAGEAL CARCINOMA
     Dosage: 6 MG/KG, Q2WK
     Route: 042
     Dates: start: 20100708
  8. CISPLATIN [Concomitant]
     Dosage: 40 MG/KG, Q2WK
     Route: 042
     Dates: start: 20100708
  9. LIPITOR [Concomitant]
     Dosage: 40 MG, QD
     Route: 048
  10. RADIATION THERAPY [Concomitant]
  11. ATENOLOL [Concomitant]
     Dosage: 25 MG, QD
     Route: 048
  12. HYDROCORTISONE [Concomitant]
     Dosage: UNK UNK, BID
  13. OXYCONTIN [Concomitant]
     Dosage: UNK UNK, BID
     Dates: end: 20100801
  14. MINOCYCLINE HCL [Concomitant]
     Dosage: 100 MG, QD
  15. HYDROCODONE [Concomitant]
     Dosage: UNK UNK, PRN
     Route: 048
  16. PERCOCET [Concomitant]
     Dosage: UNK UNK, PRN
     Route: 048
  17. COMPAZINE [Concomitant]
     Dosage: 10 MG, PRN
     Dates: end: 20100801
  18. ZOFRAN [Concomitant]

REACTIONS (3)
  - LYMPHOPENIA [None]
  - ACTIVATED PARTIAL THROMBOPLASTIN TIME PROLONGED [None]
  - PULMONARY EMBOLISM [None]
